FAERS Safety Report 6267433-2 (Version None)
Quarter: 2009Q3

REPORT INFORMATION
  Report Type: 
  Country: None (occurrence: None)
  Receive Date: 20090714
  Receipt Date: 20090701
  Transmission Date: 20100115
  Serious: Yes (Hospitalization, Other)
  Sender: FDA-Public Use
  Company Number: ES-PFIZER INC-2006123796

PATIENT
  Age: 58 Year

DRUGS (17)
  1. BLINDED *NO SUBJECT DRUG [Suspect]
     Indication: HIV INFECTION
     Dosage: UNK
     Route: 048
     Dates: start: 20050817, end: 20051028
  2. BLINDED *PLACEBO [Suspect]
     Indication: HIV INFECTION
     Dosage: UNK
     Route: 048
     Dates: start: 20050817, end: 20051028
  3. BLINDED MARAVIROC [Suspect]
     Indication: HIV INFECTION
     Dosage: UNK
     Route: 048
     Dates: start: 20050817, end: 20051028
  4. STAVUDINE [Concomitant]
     Route: 048
     Dates: start: 20050817
  5. LAMIVUDINE [Concomitant]
     Route: 048
     Dates: start: 20060315
  6. RITONAVIR [Concomitant]
     Route: 048
     Dates: start: 20050817
  7. FOSAMPRENAVIR [Concomitant]
     Route: 048
     Dates: start: 20050817
  8. PRAVASTATIN [Concomitant]
     Route: 048
     Dates: start: 20050314
  9. LOSARTAN POTASSIUM [Concomitant]
     Indication: HYPERTENSION
     Route: 048
     Dates: start: 20070412, end: 20070713
  10. LOPERAMIDE HYDROCHLORIDE [Concomitant]
     Route: 048
     Dates: start: 20050817
  11. TENOFOVIR [Concomitant]
     Route: 048
     Dates: start: 20050817, end: 20060314
  12. CEFEPIME [Concomitant]
     Route: 048
     Dates: start: 20060202, end: 20060212
  13. DIAZEPAM [Concomitant]
     Route: 048
     Dates: start: 20050817
  14. DEXAMETHASONE [Concomitant]
     Route: 042
     Dates: start: 20070626, end: 20070712
  15. PANTOPRAZOLE SODIUM [Concomitant]
     Route: 042
     Dates: start: 20070626
  16. PARACETAMOL [Concomitant]
     Route: 042
     Dates: start: 20070626
  17. METAMIZOLE [Concomitant]
     Route: 042
     Dates: start: 20070626

REACTIONS (9)
  - BRONCHITIS [None]
  - DIABETES MELLITUS [None]
  - OESOPHAGEAL CANDIDIASIS [None]
  - PANCYTOPENIA [None]
  - POSTOPERATIVE WOUND INFECTION [None]
  - SKIN ULCER [None]
  - SQUAMOUS CELL CARCINOMA [None]
  - TRANSPLANT REJECTION [None]
  - TRIGEMINAL NEURALGIA [None]
